FAERS Safety Report 17648935 (Version 1)
Quarter: 2020Q2

REPORT INFORMATION
  Report Type: Spontaneous
  Country: US (occurrence: US)
  Receive Date: 20200409
  Receipt Date: 20200409
  Transmission Date: 20200713
  Serious: No
  Sender: FDA-Public Use
  Company Number: US-TEVA-2020-US-1221742

PATIENT
  Sex: Female

DRUGS (3)
  1. ADVIL [Concomitant]
     Active Substance: IBUPROFEN
     Route: 065
  2. AUSTEDO [Suspect]
     Active Substance: DEUTETRABENAZINE
     Indication: HUNTINGTON^S DISEASE
     Dosage: 72 MILLIGRAM DAILY;
     Route: 048
     Dates: start: 2017
  3. MELATONIN [Concomitant]
     Active Substance: MELATONIN
     Route: 065

REACTIONS (2)
  - Rash [Unknown]
  - Incorrect dose administered [Unknown]
